FAERS Safety Report 13778723 (Version 1)
Quarter: 2017Q3

REPORT INFORMATION
  Report Type: Spontaneous
  Country: US (occurrence: US)
  Receive Date: 20170721
  Receipt Date: 20170721
  Transmission Date: 20171127
  Serious: No
  Sender: FDA-Public Use
  Company Number: US-PFIZER INC-2017315642

PATIENT
  Age: 13 Year
  Sex: Male
  Weight: 31 kg

DRUGS (11)
  1. ZOLOFT [Concomitant]
     Active Substance: SERTRALINE HYDROCHLORIDE
     Dosage: 50 MG, DAILY
     Route: 048
  2. GENOTROPIN [Suspect]
     Active Substance: SOMATROPIN
     Dosage: 1.7 MG, DAILY
     Route: 058
  3. GENOTROPIN [Suspect]
     Active Substance: SOMATROPIN
     Dosage: 1.8 MG, DAILY
     Route: 058
     Dates: start: 20160512
  4. GENOTROPIN [Suspect]
     Active Substance: SOMATROPIN
     Indication: GROWTH HORMONE DEFICIENCY
     Dosage: 1.2 MG, DAILY
     Route: 058
  5. VYVANSE [Concomitant]
     Active Substance: LISDEXAMFETAMINE DIMESYLATE
     Dosage: 40 MG, 1X/DAY (EVERY MORNING)
     Route: 048
  6. VYVANSE [Concomitant]
     Active Substance: LISDEXAMFETAMINE DIMESYLATE
     Dosage: 50 MG, 1X/DAY (EVERY MORNING)
     Route: 048
  7. GENOTROPIN [Suspect]
     Active Substance: SOMATROPIN
     Dosage: 1.3 MG, DAILY
     Route: 058
     Dates: start: 20160512, end: 20160520
  8. NUTROPIN AQ NUSPIN [Concomitant]
     Active Substance: SOMATROPIN
     Dosage: 1.5 MG, DAILY
     Route: 058
  9. NUTROPIN AQ NUSPIN [Concomitant]
     Active Substance: SOMATROPIN
     Dosage: 1.8 MG, DAILY
     Route: 058
     Dates: start: 20170708
  10. NUTROPIN AQ NUSPIN [Concomitant]
     Active Substance: SOMATROPIN
     Dosage: 1.3 MG, DAILY
     Route: 058
  11. NUTROPIN AQ NUSPIN [Concomitant]
     Active Substance: SOMATROPIN
     Dosage: 1.7 MG, DAILY
     Route: 058

REACTIONS (1)
  - Injection site pain [Unknown]
